FAERS Safety Report 5841833-4 (Version None)
Quarter: 2008Q3

REPORT INFORMATION
  Report Type: 
  Country: None (occurrence: None)
  Receive Date: 20080812
  Receipt Date: 20080805
  Transmission Date: 20090109
  Serious: Yes (Disabling)
  Sender: FDA-Public Use
  Company Number: B0532004A

PATIENT
  Age: 40 Year
  Sex: Female

DRUGS (1)
  1. CLENIL [Suspect]
     Indication: ASTHMA
     Route: 055

REACTIONS (3)
  - BLISTER [None]
  - ERYTHEMA [None]
  - URTICARIA [None]
